FAERS Safety Report 4945615-7 (Version None)
Quarter: 2006Q1

REPORT INFORMATION
  Report Type: 
  Country: None (occurrence: None)
  Receive Date: 20060117
  Receipt Date: 20051103
  Transmission Date: 20060701
  Serious: Yes (Hospitalization)
  Sender: FDA-Public Use
  Company Number: A03200503509

PATIENT
  Age: 59 Year
  Sex: Male
  Weight: 77.1115 kg

DRUGS (1)
  1. PLAVIX [Suspect]
     Indication: TRANSIENT ISCHAEMIC ATTACK
     Dosage: 75 MG QD - ORAL
     Route: 048
     Dates: start: 20010101

REACTIONS (3)
  - ABASIA [None]
  - ASTHENIA [None]
  - GASTRIC HAEMORRHAGE [None]
